FAERS Safety Report 12077248 (Version 1)
Quarter: 2016Q1

REPORT INFORMATION
  Report Type: Spontaneous
  Country: US (occurrence: US)
  Receive Date: 20160215
  Receipt Date: 20160215
  Transmission Date: 20160526
  Serious: Yes (Other)
  Sender: FDA-Public Use
  Company Number: US-BRISTOL-MYERS SQUIBB COMPANY-BMS-2016-010001

PATIENT
  Sex: Male

DRUGS (1)
  1. ABILIFY [Suspect]
     Active Substance: ARIPIPRAZOLE
     Indication: AUTISM
     Dosage: 10 MG, TID
     Route: 048

REACTIONS (4)
  - Self injurious behaviour [Recovered/Resolved]
  - Drooling [Recovering/Resolving]
  - Off label use [Unknown]
  - Weight increased [Recovering/Resolving]
